FAERS Safety Report 8020675-8 (Version None)
Quarter: 2012Q1

REPORT INFORMATION
  Report Type: 
  Country: None (occurrence: None)
  Receive Date: 20120103
  Receipt Date: 20111228
  Transmission Date: 20120608
  Serious: Yes (Life-Threatening, Other)
  Sender: FDA-Public Use
  Company Number: US-ASTRAZENECA-2011SE78860

PATIENT
  Age: 60 Year
  Sex: Male

DRUGS (2)
  1. NEXIUM [Suspect]
     Route: 048
  2. BLOOD PRESSURE MEDICATIONS [Suspect]
     Indication: BLOOD PRESSURE ABNORMAL

REACTIONS (7)
  - HEART RATE DECREASED [None]
  - MALAISE [None]
  - TRIGGER FINGER [None]
  - MYOCARDIAL INFARCTION [None]
  - HEPATITIS C [None]
  - FATIGUE [None]
  - GENERAL PHYSICAL HEALTH DETERIORATION [None]
